FAERS Safety Report 7792433-0 (Version None)
Quarter: 2011Q4

REPORT INFORMATION
  Report Type: 
  Country: None (occurrence: None)
  Receive Date: 20111003
  Receipt Date: 20110927
  Transmission Date: 20120403
  Serious: Yes (Other)
  Sender: FDA-Public Use
  Company Number: BR-ABBOTT-11P-020-0859125-00

PATIENT
  Sex: Male
  Weight: 120 kg

DRUGS (8)
  1. OMEPRAZOLE [Concomitant]
     Indication: PROPHYLAXIS
     Route: 048
     Dates: start: 20070101
  2. ACETAMINOPHEN [Concomitant]
     Indication: ARTHROPATHY
     Route: 048
     Dates: start: 20080101
  3. OMEPRAZOLE [Concomitant]
     Indication: GASTRIC DISORDER
  4. HUMIRA [Suspect]
     Route: 058
  5. IBUPROFEN [Concomitant]
     Indication: ARTHROPATHY
     Route: 048
     Dates: start: 20080101
  6. HUMIRA [Suspect]
     Indication: ANKYLOSING SPONDYLITIS
     Route: 058
     Dates: start: 20071208
  7. HYDROCHLOROTHIAZIDE [Concomitant]
     Indication: HYPERTENSION
     Route: 048
     Dates: start: 20100101
  8. DIVALPROEX SODIUM [Concomitant]
     Indication: BIPOLAR DISORDER
     Route: 048
     Dates: start: 20070101

REACTIONS (1)
  - WEIGHT DECREASED [None]
